FAERS Safety Report 18256328 (Version 1)
Quarter: 2020Q3

REPORT INFORMATION
  Report Type: Spontaneous
  Country: US (occurrence: US)
  Receive Date: 20200911
  Receipt Date: 20200911
  Transmission Date: 20201103
  Serious: No
  Sender: FDA-Public Use
  Company Number: US-AUROBINDO-AUR-APL-2019-094581

PATIENT
  Age: 3 Month
  Sex: Female
  Weight: 6.34 kg

DRUGS (1)
  1. RANITIDINE SYRUP 15MG/ML [Suspect]
     Active Substance: RANITIDINE
     Indication: GASTROOESOPHAGEAL REFLUX DISEASE
     Dosage: 01 MILLILITER, TWO TIMES A DAY
     Route: 065
     Dates: start: 20191026, end: 20191102

REACTIONS (6)
  - Faeces discoloured [Not Recovered/Not Resolved]
  - Illness [Not Recovered/Not Resolved]
  - Vomiting [Not Recovered/Not Resolved]
  - Diarrhoea [Not Recovered/Not Resolved]
  - Flatulence [Not Recovered/Not Resolved]
  - Somnolence [Not Recovered/Not Resolved]

NARRATIVE: CASE EVENT DATE: 20191102
